FAERS Safety Report 18338229 (Version 2)
Quarter: 2020Q4

REPORT INFORMATION
  Report Type: Spontaneous
  Country: PT (occurrence: PT)
  Receive Date: 20201002
  Receipt Date: 20201103
  Transmission Date: 20210113
  Serious: Yes (Other)
  Sender: FDA-Public Use
  Company Number: PT-BAYER-2020-207423

PATIENT
  Age: 84 Year
  Sex: Female

DRUGS (4)
  1. CIPRO [Suspect]
     Active Substance: CIPROFLOXACIN HYDROCHLORIDE
     Indication: CELLULITIS
     Dosage: UNK
  2. TRAMADOL. [Interacting]
     Active Substance: TRAMADOL
     Indication: CELLULITIS
     Dosage: UNK
  3. ACENOCUMAROL [Interacting]
     Active Substance: ACENOCOUMAROL
  4. METAMIZOLE [Interacting]
     Active Substance: METAMIZOLE
     Indication: CELLULITIS
     Dosage: UNK

REACTIONS (5)
  - Haematemesis [None]
  - Drug interaction [Unknown]
  - Ocular hyperaemia [None]
  - Blood disorder [Unknown]
  - Activated partial thromboplastin time prolonged [Unknown]
